FAERS Safety Report 17436406 (Version 3)
Quarter: 2020Q1

REPORT INFORMATION
  Report Type: Spontaneous
  Country: US (occurrence: US)
  Receive Date: 20200219
  Receipt Date: 20200228
  Transmission Date: 20200409
  Serious: No
  Sender: FDA-Public Use
  Company Number: US-JNJFOC-20200151050

PATIENT
  Age: 35 Year
  Sex: Male
  Weight: 62.2 kg

DRUGS (1)
  1. MENS ROGAINE [Suspect]
     Active Substance: MINOXIDIL
     Indication: PRODUCT USED FOR UNKNOWN INDICATION
     Dosage: DOSE: HALF CAPFUL AND FREQUENCY: TWICE DAILY?THE PRODUCT WAS LAST ADMINISTERED ON 20-FEB-2020.
     Route: 061
     Dates: start: 20180601

REACTIONS (2)
  - Therapeutic response unexpected [Unknown]
  - Product administered at inappropriate site [Unknown]

NARRATIVE: CASE EVENT DATE: 20180601
